FAERS Safety Report 15933919 (Version 1)
Quarter: 2019Q1

REPORT INFORMATION
  Report Type: Spontaneous
  Country: US (occurrence: US)
  Receive Date: 20190207
  Receipt Date: 20190207
  Transmission Date: 20190417
  Serious: No
  Sender: FDA-Public Use
  Company Number: US-JNJFOC-20190117583

PATIENT
  Sex: Female

DRUGS (1)
  1. TYLENOL EXTRA STRENGTH [Suspect]
     Active Substance: ACETAMINOPHEN
     Indication: BACK PAIN
     Dosage: ONE TABLET THEN TOOK ANOTHER ONE A COUPLE HOURS LATER
     Route: 048
     Dates: start: 20190112, end: 20190112

REACTIONS (3)
  - Swelling face [Recovering/Resolving]
  - Incorrect dose administered [Unknown]
  - Diarrhoea [Recovered/Resolved]
